FAERS Safety Report 9157922 (Version 1)
Quarter: 2013Q1

REPORT INFORMATION
  Report Type: Spontaneous
  Country: US (occurrence: US)
  Receive Date: 20130312
  Receipt Date: 20130312
  Transmission Date: 20140127
  Serious: No
  Sender: FDA-Public Use
  Company Number: US-009507513-1303USA005236

PATIENT
  Age: 58 Year
  Sex: Female

DRUGS (2)
  1. PEGINTRON [Suspect]
     Indication: HEPATITIS C
     Dosage: UNK
     Dates: start: 20120919, end: 20130227
  2. RIBAVIRIN [Suspect]
     Dosage: UNK
     Dates: start: 20120919, end: 20130227

REACTIONS (3)
  - Eye disorder [Recovering/Resolving]
  - Liver disorder [Not Recovered/Not Resolved]
  - Gallbladder disorder [Not Recovered/Not Resolved]
